FAERS Safety Report 19974506 (Version 2)
Quarter: 2021Q4

REPORT INFORMATION
  Report Type: Spontaneous
  Country: ES (occurrence: None)
  Receive Date: 20211020
  Receipt Date: 20211130
  Transmission Date: 20220304
  Serious: Yes (Other)
  Sender: FDA-Public Use
  Company Number: ES-EISAI EUROPE LTD-EC-2021-100972

PATIENT
  Age: 70 Year
  Sex: Male
  Weight: 96 kg

DRUGS (5)
  1. LENVIMA [Suspect]
     Active Substance: LENVATINIB
     Indication: Hepatocellular carcinoma
     Route: 048
     Dates: start: 20210915, end: 20211005
  2. ENALAPRIL [Concomitant]
     Active Substance: ENALAPRIL
     Indication: Hypertension
     Dosage: 20 MG, FREQUENCY UNKNOWN
     Route: 065
     Dates: end: 20210930
  3. ESOMEPRAZOLE [Concomitant]
     Active Substance: ESOMEPRAZOLE
     Indication: Hiatus hernia
     Dosage: 40 MG, FREQUENCY UNKNOWN
     Route: 065
  4. METFORMIN [Concomitant]
     Active Substance: METFORMIN HYDROCHLORIDE
     Indication: Diabetes mellitus
     Dosage: DOSE AND FREQUENCY UNKNOWN
     Route: 065
  5. SERENOA [Concomitant]
     Indication: Benign prostatic hyperplasia
     Dosage: DOSE AND FREQUENCY UNKNOWN
     Route: 065

REACTIONS (7)
  - Upper gastrointestinal haemorrhage [Recovered/Resolved]
  - Gastric ulcer [Recovered/Resolved]
  - Hypertension [Recovering/Resolving]
  - Asthenia [Recovered/Resolved]
  - Muscular weakness [Recovered/Resolved]
  - Nausea [Recovered/Resolved]
  - Dysphonia [Recovered/Resolved]

NARRATIVE: CASE EVENT DATE: 20210930
